FAERS Safety Report 4966525-5 (Version None)
Quarter: 2006Q1

REPORT INFORMATION
  Report Type: 
  Country: None (occurrence: None)
  Receive Date: 20060201
  Receipt Date: 20051006
  Transmission Date: 20060701
  Serious: No
  Sender: FDA-Public Use
  Company Number: 2005PV002923

PATIENT
  Age: 66 Year
  Sex: Male

DRUGS (4)
  1. BYETTA [Suspect]
     Indication: DIABETES MELLITUS NON-INSULIN-DEPENDENT
     Dosage: 5 MCG, BID, SC
     Route: 058
     Dates: start: 20051001
  2. METFORMIN [Concomitant]
  3. AVANDIA [Concomitant]
  4. GLIPIZIDE [Concomitant]

REACTIONS (4)
  - ABDOMINAL DISTENSION [None]
  - ASTHENIA [None]
  - FLATULENCE [None]
  - NAUSEA [None]
